FAERS Safety Report 18478559 (Version 1)
Quarter: 2020Q4

REPORT INFORMATION
  Report Type: Spontaneous
  Country: CN (occurrence: CN)
  Receive Date: 20201109
  Receipt Date: 20201109
  Transmission Date: 20210114
  Serious: Yes (Other)
  Sender: FDA-Public Use
  Company Number: CN-BAXTER-2020BAX022475

PATIENT
  Age: 54 Year
  Sex: Female
  Weight: 60 kg

DRUGS (12)
  1. ENDOXAN [Suspect]
     Active Substance: CYCLOPHOSPHAMIDE
     Dosage: SECOND CHEMOTHERAPY: CYCLOPHOSPHAMIDE 800 MG + NS 40ML
     Route: 042
     Dates: start: 20200805, end: 20200805
  2. 0.9% SODIUM CHLORIDE INJECTION [Suspect]
     Active Substance: SODIUM CHLORIDE
     Indication: MEDICATION DILUTION
     Dosage: FIRST CHEMOTHERAPY, CYCLOPHOSPHAMIDE + NS
     Route: 042
  3. PHARMORUBICIN [Suspect]
     Active Substance: EPIRUBICIN
     Indication: BREAST CANCER FEMALE
     Dosage: FIRST CHEMOTHERAPY, EPIRUBICIN HYDROCHLORIDE+ NS
     Route: 041
  4. PHARMORUBICIN [Suspect]
     Active Substance: EPIRUBICIN
     Dosage: DOSE RE-INTRODUCED, EPIRUBICIN HYDROCHLORIDE + NS
     Route: 041
  5. 0.9% SODIUM CHLORIDE INJECTION [Suspect]
     Active Substance: SODIUM CHLORIDE
     Dosage: FIRST CHEMOTHERAPY, EPIRUBICIN HYDROCHLORIDE + NS
     Route: 041
  6. PHARMORUBICIN [Suspect]
     Active Substance: EPIRUBICIN
     Dosage: SECOND CHEMOTHERAPY, EPIRUBICIN HYDROCHLORIDE 125 MG + NS 100ML
     Route: 041
     Dates: start: 20200805, end: 20200805
  7. 0.9% SODIUM CHLORIDE INJECTION [Suspect]
     Active Substance: SODIUM CHLORIDE
     Dosage: SECOND CHEMOTHERAPY, CYCLOPHOSPHAMIDE 800 MG + NS 40ML
     Route: 042
     Dates: start: 20200805, end: 20200805
  8. ENDOXAN [Suspect]
     Active Substance: CYCLOPHOSPHAMIDE
     Indication: BREAST CANCER FEMALE
     Dosage: FIRST  CHEMOTHERAPY: CYCLOPHOSPHAMIDE + NS
     Route: 042
  9. 0.9% SODIUM CHLORIDE INJECTION [Suspect]
     Active Substance: SODIUM CHLORIDE
     Dosage: DOSE RE-INTRODUCED: CYCLOPHOSPHAMIDE + NS
     Route: 042
  10. 0.9% SODIUM CHLORIDE INJECTION [Suspect]
     Active Substance: SODIUM CHLORIDE
     Dosage: DOSE RE-INTRODUCED: EPIRUBICIN HYDROCHLORIDE + NS
     Route: 041
  11. ENDOXAN [Suspect]
     Active Substance: CYCLOPHOSPHAMIDE
     Dosage: DOSE RE-INTRODUCED, CYCLOPHOSPHAMIDE + NS.
     Route: 042
  12. 0.9% SODIUM CHLORIDE INJECTION [Suspect]
     Active Substance: SODIUM CHLORIDE
     Dosage: SECOND CHEMOTHERAPY: EPIRUBICIN HYDROCHLORIDE 125 MG + NS 100 ML
     Route: 041
     Dates: start: 20200805, end: 20200805

REACTIONS (1)
  - Agranulocytosis [Recovering/Resolving]

NARRATIVE: CASE EVENT DATE: 20200818
